FAERS Safety Report 25874583 (Version 1)
Quarter: 2025Q4

REPORT INFORMATION
  Report Type: Spontaneous
  Country: US (occurrence: None)
  Receive Date: 20251002
  Receipt Date: 20251002
  Transmission Date: 20260117
  Serious: Yes (Other)
  Sender: FDA-CTU
  Company Number: None

PATIENT
  Age: 29 Year
  Sex: Female
  Weight: 132.45 kg

DRUGS (2)
  1. TOLVAPTAN [Suspect]
     Active Substance: TOLVAPTAN
     Indication: Congenital cystic kidney disease
     Dosage: OTHER FREQUENCY : AM;?
     Route: 048
     Dates: start: 20241204, end: 20251002
  2. TOLVAPTAN [Suspect]
     Active Substance: TOLVAPTAN
     Dosage: OTHER FREQUENCY : PM;?
     Route: 048

REACTIONS (2)
  - Groin pain [None]
  - Hepatosplenomegaly [None]

NARRATIVE: CASE EVENT DATE: 20250929
